FAERS Safety Report 9698068 (Version 2)
Quarter: 2013Q4

REPORT INFORMATION
  Report Type: Spontaneous
  Country: BR (occurrence: BR)
  Receive Date: 20131120
  Receipt Date: 20131216
  Transmission Date: 20140711
  Serious: Yes (Death)
  Sender: FDA-Public Use
  Company Number: BR-SA-2013SA118751

PATIENT
  Age: 84 Year
  Sex: Male
  Weight: 60 kg

DRUGS (3)
  1. LANTUS [Suspect]
     Indication: TYPE 2 DIABETES MELLITUS
     Route: 058
     Dates: start: 20131025, end: 20131025
  2. TRAYENTA [Concomitant]
     Indication: TYPE 2 DIABETES MELLITUS
     Route: 048
     Dates: start: 20131025, end: 20131025
  3. DEVICE NOS [Concomitant]
     Indication: DEVICE THERAPY
     Dates: start: 20131025, end: 20131025

REACTIONS (6)
  - Hypoglycaemia [Fatal]
  - Dizziness [Fatal]
  - Hyperhidrosis [Fatal]
  - Malaise [Fatal]
  - Exophthalmos [Fatal]
  - Loss of consciousness [Fatal]
